FAERS Safety Report 21248575 (Version 3)
Quarter: 2022Q4

REPORT INFORMATION
  Report Type: Spontaneous
  Country: US (occurrence: US)
  Receive Date: 20220824
  Receipt Date: 20221122
  Transmission Date: 20230113
  Serious: No
  Sender: FDA-Public Use
  Company Number: US-BAYER-2022A118061

PATIENT
  Age: 59 Year
  Sex: Female

DRUGS (1)
  1. CLIMARA [Suspect]
     Active Substance: ESTRADIOL
     Dosage: UNK UNK, OW
     Route: 062

REACTIONS (4)
  - Hot flush [None]
  - Night sweats [None]
  - Drug ineffective [None]
  - Product packaging issue [None]

NARRATIVE: CASE EVENT DATE: 20220813
